FAERS Safety Report 23815204 (Version 1)
Quarter: 2024Q2

REPORT INFORMATION
  Report Type: Spontaneous
  Country: US (occurrence: None)
  Receive Date: 20240502
  Receipt Date: 20240502
  Transmission Date: 20240716
  Serious: Yes (Death, Hospitalization, Other)
  Sender: FDA-Public Use
  Company Number: None

PATIENT
  Age: 58 Year
  Sex: Female

DRUGS (1)
  1. CARVYKTI [Suspect]
     Active Substance: CILTACABTAGENE AUTOLEUCEL
     Indication: Plasma cell myeloma
     Dates: start: 20231218, end: 20231218

REACTIONS (11)
  - Neurotoxicity [None]
  - Bell^s palsy [None]
  - Altered state of consciousness [None]
  - Balance disorder [None]
  - Coordination abnormal [None]
  - Tremor [None]
  - Gait inability [None]
  - Dysarthria [None]
  - Confusional state [None]
  - Therapy non-responder [None]
  - Infection [None]

NARRATIVE: CASE EVENT DATE: 20231218
